FAERS Safety Report 5626759-3 (Version None)
Quarter: 2008Q1

REPORT INFORMATION
  Report Type: 
  Country: None (occurrence: None)
  Receive Date: 20080214
  Receipt Date: 20080204
  Transmission Date: 20080703
  Serious: Yes (Hospitalization)
  Sender: FDA-Public Use
  Company Number: FR-PFIZER INC-2008010922

PATIENT
  Sex: Male

DRUGS (11)
  1. MEDROL [Suspect]
     Route: 048
  2. NEFOPAM [Suspect]
     Route: 042
     Dates: start: 20071017, end: 20071020
  3. MORPHINE [Suspect]
     Route: 058
  4. PROGRAF [Suspect]
     Dosage: TEXT:1 MG
     Route: 048
  5. NOVONORM [Concomitant]
  6. CELLCEPT [Concomitant]
  7. INIPOMP [Concomitant]
  8. LOVENOX [Concomitant]
  9. UMULINE [Concomitant]
  10. EUPRESSYL [Concomitant]
  11. PARACETAMOL [Concomitant]

REACTIONS (3)
  - AGGRESSION [None]
  - HALLUCINATION [None]
  - MANIA [None]
